FAERS Safety Report 8098165-6 (Version None)
Quarter: 2012Q1

REPORT INFORMATION
  Report Type: 
  Country: None (occurrence: None)
  Receive Date: 20120128
  Receipt Date: 20110810
  Transmission Date: 20120608
  Serious: No
  Sender: FDA-Public Use
  Company Number: US-ABBOTT-11P-163-0845080-00

PATIENT
  Sex: Female

DRUGS (24)
  1. HUMIRA [Suspect]
     Indication: CROHN'S DISEASE
     Dosage: ON DAY 15
     Dates: start: 20110722
  2. FENTANYL [Concomitant]
     Indication: RHEUMATOID ARTHRITIS
     Dosage: PATCH
  3. HYOSCYAMINE [Concomitant]
     Indication: MUSCLE SPASMS
  4. PAXIL CR [Concomitant]
     Indication: DEPRESSION
  5. FOLIC ACID [Concomitant]
     Indication: VITAMIN SUPPLEMENTATION
  6. PREVACID [Concomitant]
     Indication: ABDOMINAL DISCOMFORT
  7. METHOTREXATE [Concomitant]
     Indication: RHEUMATOID ARTHRITIS
     Route: 058
  8. RESTORIL [Concomitant]
     Indication: INSOMNIA
     Dosage: AT BEDTIME
  9. MULTI-VITAMIN [Concomitant]
     Indication: PRODUCT USED FOR UNKNOWN INDICATION
  10. ZISTARIL [Concomitant]
     Indication: HYPERTENSION
  11. MELATONIN [Concomitant]
     Indication: INSOMNIA
     Dosage: AT BEDTIME
  12. BENTYL [Concomitant]
     Indication: IRRITABLE BOWEL SYNDROME
     Dosage: 4-6 HOURS
  13. PERCOCET [Concomitant]
     Indication: BREAKTHROUGH PAIN
  14. DIVIGEL ESTROGEN [Concomitant]
     Indication: PAIN
     Dosage: APPLIED TO SKIN DAILY
  15. ELMIRON [Concomitant]
     Indication: CYSTITIS
  16. VITAMIN D [Concomitant]
     Indication: PRODUCT USED FOR UNKNOWN INDICATION
  17. LOVAZA [Concomitant]
     Indication: PRODUCT USED FOR UNKNOWN INDICATION
  18. TOPAMAX [Concomitant]
     Indication: CONVULSION
  19. POTASSIUM CHLORIDE [Concomitant]
     Indication: BLOOD POTASSIUM DECREASED
     Dosage: ER
  20. ENABLEX [Concomitant]
     Indication: HYPERTONIC BLADDER
  21. ADVAIR DISKUS 100/50 [Concomitant]
     Indication: ASTHMA
     Dosage: 250/50
  22. CRESTOR [Concomitant]
     Indication: BLOOD CHOLESTEROL INCREASED
  23. SYNTHROID [Concomitant]
     Indication: HYPOTHYROIDISM
  24. PROSED/DS [Concomitant]
     Indication: BLADDER PAIN

REACTIONS (2)
  - NAUSEA [None]
  - ABDOMINAL PAIN UPPER [None]
